FAERS Safety Report 8828542 (Version 1)
Quarter: 2012Q4

REPORT INFORMATION
  Report Type: 
  Country: NL (occurrence: NL)
  Receive Date: 20121005
  Receipt Date: 20121005
  Transmission Date: 20130627
  Serious: Yes (Other)
  Sender: FDA-Public Use
  Company Number: NL-AMGEN-NLDCT2012062507

PATIENT
  Age: 40 Year
  Sex: Male

DRUGS (3)
  1. ETANERCEPT [Suspect]
     Indication: ANKYLOSING SPONDYLITIS
     Dosage: 50 mg, qwk
  2. DICLOFENAC [Suspect]
     Indication: ANKYLOSING SPONDYLITIS
     Dosage: UNK
  3. ISONIAZID [Suspect]
     Indication: ANKYLOSING SPONDYLITIS
     Dosage: UNK

REACTIONS (1)
  - Hepatic enzyme increased [Unknown]
